FAERS Safety Report 14970916 (Version 1)
Quarter: 2018Q2

REPORT INFORMATION
  Report Type: Spontaneous
  Country: PL (occurrence: PL)
  Receive Date: 20180604
  Receipt Date: 20180604
  Transmission Date: 20180711
  Serious: Yes (Other)
  Sender: FDA-Public Use
  Company Number: PL-JNJFOC-20180601128

PATIENT
  Age: 39 Year
  Sex: Male

DRUGS (1)
  1. RISPERDAL CONSTA [Suspect]
     Active Substance: RISPERIDONE
     Indication: PRODUCT USED FOR UNKNOWN INDICATION
     Route: 065
     Dates: start: 201607

REACTIONS (14)
  - Tracheitis [Unknown]
  - Pollakiuria [Unknown]
  - Dizziness [Unknown]
  - Cerebral circulatory failure [Unknown]
  - Haematochezia [Unknown]
  - Nasopharyngitis [Unknown]
  - Balance disorder [Unknown]
  - Productive cough [Unknown]
  - Immune system disorder [Unknown]
  - Urticaria [Unknown]
  - Respiratory symptom [Unknown]
  - Skin reaction [Unknown]
  - Headache [Unknown]
  - Palpitations [Unknown]

NARRATIVE: CASE EVENT DATE: 201710
